FAERS Safety Report 9099006 (Version 2)
Quarter: 2015Q1

REPORT INFORMATION
  Report Type: Spontaneous
  Country: US (occurrence: US)
  Receive Date: 20130213
  Receipt Date: 20150327
  Transmission Date: 20150721
  Serious: Yes (Other)
  Sender: FDA-Public Use
  Company Number: US-ROCHE-755096

PATIENT
  Sex: Male
  Weight: 86.26 kg

DRUGS (4)
  1. ACCUTANE [Suspect]
     Active Substance: ISOTRETINOIN
     Indication: ACNE
     Route: 065
  2. PAXIL (UNITED STATES) [Concomitant]
  3. WELLBUTRIN [Concomitant]
     Active Substance: BUPROPION HYDROCHLORIDE
  4. SEROQUEL [Concomitant]
     Active Substance: QUETIAPINE FUMARATE
     Indication: DEPRESSION

REACTIONS (6)
  - Depression [Unknown]
  - Large intestine polyp [Unknown]
  - Enteritis infectious [Unknown]
  - Inflammatory bowel disease [Unknown]
  - Colitis ulcerative [Unknown]
  - Irritable bowel syndrome [Unknown]

NARRATIVE: CASE EVENT DATE: 2006
